FAERS Safety Report 5175632-6 (Version None)
Quarter: 2006Q4

REPORT INFORMATION
  Report Type: 
  Country: None (occurrence: None)
  Receive Date: 20061215
  Receipt Date: 20061127
  Transmission Date: 20070319
  Serious: Yes (Disabling, Other)
  Sender: FDA-Public Use
  Company Number: 2006UW26230

PATIENT
  Age: 39 Year
  Sex: Female
  Weight: 65 kg

DRUGS (4)
  1. MERREM [Suspect]
     Indication: PNEUMONIA
     Route: 042
  2. MERREM [Suspect]
     Indication: URINARY TRACT INFECTION
     Route: 042
  3. KEPPRA [Concomitant]
     Indication: CONVULSION
     Dates: start: 20060801
  4. VITAMINS [Concomitant]

REACTIONS (2)
  - AGNOSIA [None]
  - DEAFNESS [None]
